FAERS Safety Report 11267096 (Version 1)
Quarter: 2015Q3

REPORT INFORMATION
  Report Type: Report from Study
  Country: US (occurrence: US)
  Receive Date: 20150713
  Receipt Date: 20150713
  Transmission Date: 20151125
  Serious: Yes (Congenital Anomaly, Other)
  Sender: FDA-Public Use
  Company Number: US-VIIV HEALTHCARE LIMITED-US2006GSK000003

PATIENT
  Sex: Male

DRUGS (3)
  1. VIRACEPT [Suspect]
     Active Substance: NELFINAVIR MESYLATE
     Indication: HIV INFECTION
     Dosage: UNK UNK, U
     Route: 064
  2. ZIDOVUDINE. [Suspect]
     Active Substance: ZIDOVUDINE
     Indication: HIV INFECTION
     Dosage: UNK UNK, U
     Route: 064
  3. LAMIVUDINE. [Suspect]
     Active Substance: LAMIVUDINE
     Indication: HIV INFECTION
     Dosage: UNK, U
     Route: 064

REACTIONS (5)
  - Foetal exposure during pregnancy [Unknown]
  - Hypospadias [Unknown]
  - Microcephaly [Unknown]
  - Scrotal disorder [Unknown]
  - Micrognathia [Unknown]

NARRATIVE: CASE EVENT DATE: 19970918
